FAERS Safety Report 9911735 (Version 1)
Quarter: 2014Q1

REPORT INFORMATION
  Report Type: Spontaneous
  Country: JP (occurrence: JP)
  Receive Date: 20140219
  Receipt Date: 20140219
  Transmission Date: 20141002
  Serious: Yes (Hospitalization)
  Sender: FDA-Public Use
  Company Number: PHHY2014JP017249

PATIENT
  Age: 63 Year
  Sex: Female

DRUGS (4)
  1. RIFAMPICIN SANDOZ [Suspect]
     Indication: MYCOBACTERIUM AVIUM COMPLEX INFECTION
     Dosage: 150 MG, UNK
     Route: 048
  2. ETHAMBUTOL [Suspect]
     Indication: MYCOBACTERIUM AVIUM COMPLEX INFECTION
  3. CLARITHROMYCIN [Suspect]
     Indication: MYCOBACTERIUM AVIUM COMPLEX INFECTION
     Dosage: 200 MG, UNK
     Route: 048
  4. LEVOFLOXACIN [Suspect]
     Indication: MYCOBACTERIUM AVIUM COMPLEX INFECTION

REACTIONS (4)
  - Mycobacterium avium complex infection [Unknown]
  - Condition aggravated [Unknown]
  - Gastrointestinal disorder [Unknown]
  - Feeling abnormal [Unknown]
